FAERS Safety Report 23222609 (Version 1)
Quarter: 2023Q4

REPORT INFORMATION
  Report Type: Report from Study
  Country: US (occurrence: US)
  Receive Date: 20231123
  Receipt Date: 20231123
  Transmission Date: 20240110
  Serious: Yes (Other)
  Sender: FDA-Public Use
  Company Number: US-SUN PHARMACEUTICAL INDUSTRIES LTD-2023R1-419800

PATIENT
  Age: 66 Year
  Sex: Female

DRUGS (4)
  1. PREDNISONE [Suspect]
     Active Substance: PREDNISONE
     Indication: Lacrimation increased
     Dosage: UNK
     Route: 065
  2. PREDNISONE [Suspect]
     Active Substance: PREDNISONE
     Indication: Mass
  3. PREDNISONE [Suspect]
     Active Substance: PREDNISONE
     Indication: Periorbital swelling
  4. PREDNISONE [Suspect]
     Active Substance: PREDNISONE
     Indication: Periorbital discomfort

REACTIONS (1)
  - Therapy non-responder [Unknown]
